FAERS Safety Report 16359736 (Version 1)
Quarter: 2019Q2

REPORT INFORMATION
  Report Type: Spontaneous
  Country: DE (occurrence: DE)
  Receive Date: 20190528
  Receipt Date: 20190528
  Transmission Date: 20190711
  Serious: Yes (Hospitalization)
  Sender: FDA-Public Use
  Company Number: DE-B.I. PHARMACEUTICALS,INC./RIDGEFIELD-2019-BI-023310

PATIENT
  Age: 63 Year
  Sex: Female

DRUGS (1)
  1. PRADAXA [Suspect]
     Active Substance: DABIGATRAN ETEXILATE MESYLATE
     Indication: ATRIAL FIBRILLATION
     Dosage: 2 ? 150 MG DAILY
     Route: 065

REACTIONS (6)
  - Dysphonia [Unknown]
  - Rib fracture [Unknown]
  - Dyspnoea [Unknown]
  - Subcutaneous emphysema [Unknown]
  - Haemorrhage [Recovered/Resolved]
  - Fall [Unknown]
